FAERS Safety Report 8339320-7 (Version None)
Quarter: 2012Q2

REPORT INFORMATION
  Report Type: 
  Country: None (occurrence: None)
  Receive Date: 20120503
  Receipt Date: 20120423
  Transmission Date: 20120825
  Serious: Yes (Other)
  Sender: FDA-Public Use
  Company Number: AUR-APL-2012-01960

PATIENT
  Age: 36 Year
  Sex: Female
  Weight: 170 kg

DRUGS (3)
  1. MIRTAZAPINE [Suspect]
     Indication: DEPRESSION
     Dosage: 7.5 MG (7.5 MG, 1IN 1 D),ORAL
     Route: 048
     Dates: start: 20120320, end: 20120408
  2. KONTRAZEPTIVA [Concomitant]
  3. SERTRALINE HYDROCHLORIDE [Suspect]
     Indication: DEPRESSION
     Dosage: 50 MG (50 MG, 1 IN 1 D),ORAL
     Route: 048
     Dates: start: 20120320, end: 20120408

REACTIONS (3)
  - DIARRHOEA [None]
  - DIZZINESS [None]
  - BREAST DISCOMFORT [None]
